FAERS Safety Report 4752711-6 (Version None)
Quarter: 2005Q3

REPORT INFORMATION
  Report Type: 
  Country: None (occurrence: None)
  Receive Date: 20050823
  Receipt Date: 20050809
  Transmission Date: 20060218
  Serious: Yes (Hospitalization)
  Sender: FDA-Public Use
  Company Number: 195472

PATIENT
  Age: 51 Year
  Sex: Female

DRUGS (5)
  1. AVONEX [Suspect]
     Indication: MULTIPLE SCLEROSIS
     Dosage: 30 UG; QW; IM; 30 UG; QW; IM
     Route: 030
     Dates: start: 20000101, end: 20031001
  2. AVONEX [Suspect]
     Indication: MULTIPLE SCLEROSIS
     Dosage: 30 UG; QW; IM; 30 UG; QW; IM
     Route: 030
     Dates: start: 20031001, end: 20040101
  3. NAPRELAN [Concomitant]
  4. ASPIRIN [Concomitant]
  5. PROZAC [Concomitant]

REACTIONS (4)
  - ECONOMIC PROBLEM [None]
  - INFLUENZA LIKE ILLNESS [None]
  - OVARIAN CYST [None]
  - VAGINAL HAEMORRHAGE [None]
